FAERS Safety Report 8514612-7 (Version None)
Quarter: 2012Q3

REPORT INFORMATION
  Report Type: 
  Country: None (occurrence: None)
  Receive Date: 20120717
  Receipt Date: 20120709
  Transmission Date: 20120928
  Serious: Yes (Other)
  Sender: FDA-Public Use
  Company Number: JP-ASTRAZENECA-2012SE48536

PATIENT
  Age: 87 Year
  Sex: Male

DRUGS (2)
  1. SEROQUEL [Suspect]
     Indication: RESTLESSNESS
     Route: 048
  2. ZOLPIDEM [Concomitant]
     Route: 048

REACTIONS (3)
  - DEPRESSED LEVEL OF CONSCIOUSNESS [None]
  - DYSARTHRIA [None]
  - OFF LABEL USE [None]
